FAERS Safety Report 4439658-X (Version None)
Quarter: 2004Q3

REPORT INFORMATION
  Report Type: 
  Country: None (occurrence: None)
  Receive Date: 20040831
  Receipt Date: 20040831
  Transmission Date: 20050211
  Serious: No
  Sender: FDA-Public Use
  Company Number: None

PATIENT
  Age: 68 Year
  Sex: Male
  Weight: 117.9352 kg

DRUGS (2)
  1. VANCOMYCIN [Suspect]
     Indication: SEPSIS
     Dosage: 1500 MG Q 48 IVPB
     Route: 040
     Dates: start: 20040816, end: 20040824
  2. VANCOMYCIN [Suspect]

REACTIONS (2)
  - CLOSTRIDIAL INFECTION [None]
  - DIARRHOEA [None]
